FAERS Safety Report 12304378 (Version 1)
Quarter: 2016Q2

REPORT INFORMATION
  Report Type: Spontaneous
  Country: US (occurrence: None)
  Receive Date: 20160425
  Receipt Date: 20160425
  Transmission Date: 20160815
  Serious: Yes (Hospitalization)
  Sender: FDA-Public Use
  Company Number: None

PATIENT
  Age: 34 Year
  Sex: Female
  Weight: 104.33 kg

DRUGS (6)
  1. ESCITALOPRAM [Suspect]
     Active Substance: ESCITALOPRAM OXALATE
     Indication: DEPRESSION
     Dosage: 10MG 1 TABLET 1 A DAY IN MORNING MOUTH
     Route: 048
     Dates: start: 20160323, end: 20160330
  2. MOTRIN [Concomitant]
     Active Substance: IBUPROFEN
  3. XANAX [Concomitant]
     Active Substance: ALPRAZOLAM
  4. PRILOSEC [Concomitant]
     Active Substance: OMEPRAZOLE MAGNESIUM
  5. BENADRYL [Concomitant]
     Active Substance: DIPHENHYDRAMINE HYDROCHLORIDE
  6. MULTIVITAMIN [Concomitant]
     Active Substance: VITAMINS

REACTIONS (4)
  - Dystonia [None]
  - Pain in jaw [None]
  - Serotonin syndrome [None]
  - Suicidal ideation [None]

NARRATIVE: CASE EVENT DATE: 20160313
